FAERS Safety Report 7114435-X (Version None)
Quarter: 2010Q4

REPORT INFORMATION
  Report Type: 
  Country: None (occurrence: None)
  Receive Date: 20101119
  Receipt Date: 20101111
  Transmission Date: 20110411
  Serious: Yes (Hospitalization, Other)
  Sender: FDA-Public Use
  Company Number: JP-AMGEN-KDC437223

PATIENT

DRUGS (17)
  1. PANITUMUMAB [Suspect]
     Indication: COLORECTAL CANCER
     Dosage: 6 MG/KG, Q2WK
     Route: 041
     Dates: start: 20100720
  2. IRINOTECAN HYDROCHLORIDE [Suspect]
     Indication: COLORECTAL CANCER
     Dosage: 100 MG, Q2WK
     Route: 041
     Dates: start: 20100720
  3. FLUOROURACIL [Suspect]
     Indication: COLORECTAL CANCER
     Dosage: 450 MG, Q2WK
     Route: 040
     Dates: start: 20100720
  4. FLUOROURACIL [Suspect]
     Dosage: 2500 MG, Q2WK
     Route: 041
     Dates: start: 20100720
  5. CALCIUM LEVOFOLINATE [Suspect]
     Indication: COLORECTAL CANCER
     Dosage: 240 MG, Q2WK
     Route: 041
     Dates: start: 20100720
  6. GASTROM [Concomitant]
     Dosage: UNK UNK, UNK
     Route: 048
  7. GASTROM [Concomitant]
     Route: 048
  8. ULCERLMIN [Concomitant]
     Dosage: UNK UNK, UNK
     Route: 048
  9. ULCERLMIN [Concomitant]
     Route: 048
  10. PROMAC D [Concomitant]
     Dosage: UNK UNK, UNK
     Route: 048
  11. PROMAC D [Concomitant]
     Route: 048
  12. PROTECADIN [Concomitant]
     Dosage: UNK UNK, UNK
     Route: 048
  13. PROTECADIN [Concomitant]
     Route: 048
  14. DECADRON [Concomitant]
     Route: 042
  15. ALOXI [Concomitant]
     Route: 042
  16. NORVASC [Concomitant]
     Route: 048
  17. BIOFERMIN R [Concomitant]
     Route: 048

REACTIONS (8)
  - ANAEMIA [None]
  - ASTHENIA [None]
  - BLOOD CALCIUM INCREASED [None]
  - DECREASED APPETITE [None]
  - HAEMATURIA [None]
  - NEUTROPHIL COUNT DECREASED [None]
  - RASH [None]
  - STOMATITIS [None]
